FAERS Safety Report 6963566-3 (Version None)
Quarter: 2010Q3

REPORT INFORMATION
  Report Type: 
  Country: None (occurrence: None)
  Receive Date: 20100830
  Receipt Date: 20100818
  Transmission Date: 20110219
  Serious: Yes (Other)
  Sender: FDA-Public Use
  Company Number: 2010SP044612

PATIENT
  Age: 65 Year
  Sex: Female
  Weight: 45 kg

DRUGS (7)
  1. VECURONIUM BROMIDE [Suspect]
     Indication: NEUROMUSCULAR BLOCKING THERAPY
     Dosage: 4.8 MG
  2. PROPOFOL [Suspect]
     Indication: ANAESTHESIA PROCEDURE
     Dosage: 2 MG/KG
  3. FENTANYL-100 [Suspect]
     Indication: ANALGESIC THERAPY
     Dosage: 2 MCG/KG
  4. NITROUS OXIDE W/ OXYGEN [Suspect]
     Indication: NEUROMUSCULAR BLOCKING THERAPY
  5. ISOFLURANE [Suspect]
     Indication: ANAESTHESIA PROCEDURE
     Dosage: 0.8 PCT,
  6. RANITIDINE [Concomitant]
  7. ALPRAZOLAM [Concomitant]

REACTIONS (6)
  - CHOLELITHIASIS [None]
  - HYPOTHERMIA [None]
  - HYPOVENTILATION [None]
  - NEUROMUSCULAR BLOCKADE [None]
  - RESPIRATORY ACIDOSIS [None]
  - RESPIRATORY RATE DECREASED [None]
